FAERS Safety Report 4638025-3 (Version None)
Quarter: 2005Q2

REPORT INFORMATION
  Report Type: 
  Country: None (occurrence: None)
  Receive Date: 20050415
  Receipt Date: 20050407
  Transmission Date: 20051028
  Serious: Yes (Hospitalization)
  Sender: FDA-Public Use
  Company Number: 2005-04-0228

PATIENT
  Age: 64 Year
  Sex: Male

DRUGS (7)
  1. INTRON A [Suspect]
     Indication: METASTATIC RENAL CELL CARCINOMA
     Dosage: SUBCUTANEOUS
     Route: 058
     Dates: start: 20050307
  2. METFORMIN [Concomitant]
  3. INSULIN SUBCUTANEOUS [Concomitant]
  4. TELMISARTAN [Concomitant]
  5. ATORVASTATIN CALCIUM [Concomitant]
  6. TRAMADOL HCL [Concomitant]
  7. IBUPROFEN PRN [Concomitant]

REACTIONS (6)
  - CONFUSIONAL STATE [None]
  - DRUG TOXICITY [None]
  - HYPOXIA [None]
  - INFLUENZA LIKE ILLNESS [None]
  - RENAL FAILURE ACUTE [None]
  - SEPSIS [None]
